FAERS Safety Report 25413216 (Version 1)
Quarter: 2025Q2

REPORT INFORMATION
  Report Type: Spontaneous
  Country: US (occurrence: US)
  Receive Date: 20250609
  Receipt Date: 20250609
  Transmission Date: 20250716
  Serious: No
  Sender: IPSEN BIOPHARMACEUTICALS, INC.
  Company Number: US-IPSEN Group, Research and Development-2025-12993

PATIENT
  Age: 1 Year
  Sex: Male

DRUGS (4)
  1. BYLVAY [Suspect]
     Active Substance: ODEVIXIBAT
     Indication: Liver disorder
     Dosage: SPRINKLE/MIX CONTENTS OF ONE 600 MCG ORAL PELLET WITH/OVER FOOD AND TAKE BY MOUTH ONCE DAILY WITH A
     Route: 048
     Dates: start: 20250116
  2. RIFAMPIN [Concomitant]
     Active Substance: RIFAMPIN
  3. URSO [Concomitant]
     Active Substance: URSODIOL
  4. AMOXICILLIN [Concomitant]
     Active Substance: AMOXICILLIN

REACTIONS (1)
  - Faeces discoloured [Unknown]
